FAERS Safety Report 4314669-3 (Version None)
Quarter: 2004Q1

REPORT INFORMATION
  Report Type: 
  Country: None (occurrence: None)
  Receive Date: 20040308
  Receipt Date: 20040223
  Transmission Date: 20041129
  Serious: Yes (Hospitalization)
  Sender: FDA-Public Use
  Company Number: 2004012630

PATIENT
  Age: 25 Year
  Sex: Female
  Weight: 55 kg

DRUGS (3)
  1. VIRACEPT [Suspect]
     Indication: PROPHYLAXIS AGAINST HIV INFECTION
     Dosage: 2500 MG (BID), ORAL
     Route: 048
     Dates: start: 20031222
  2. ZIDOVUDINE W/LAMIVUDINE (ZIDOVUDINE, LAMIVUDINE) [Suspect]
     Indication: PROPHYLAXIS AGAINST HIV INFECTION
     Dosage: (BID), ORAL
     Route: 048
     Dates: start: 20031222
  3. CITALOPRAM [Concomitant]

REACTIONS (12)
  - CYTOLYTIC HEPATITIS [None]
  - DIARRHOEA [None]
  - EOSINOPHILIA [None]
  - HAEMOGLOBIN DECREASED [None]
  - HEPATOTOXICITY [None]
  - HYPERSENSITIVITY [None]
  - LYMPHOCYTOSIS [None]
  - LYMPHOPENIA [None]
  - MONOCYTE COUNT INCREASED [None]
  - RENAL IMPAIRMENT [None]
  - THROMBOCYTOPENIA [None]
  - VOMITING [None]
